FAERS Safety Report 9249585 (Version 1)
Quarter: 2013Q2

REPORT INFORMATION
  Report Type: Spontaneous
  Country: US (occurrence: US)
  Receive Date: 20130423
  Receipt Date: 20130423
  Transmission Date: 20140414
  Serious: No
  Sender: FDA-Public Use
  Company Number: US-BRISTOL-MYERS SQUIBB COMPANY-17423872

PATIENT
  Age: 70 Year
  Sex: Female
  Weight: 73.47 kg

DRUGS (2)
  1. YERVOY [Suspect]
     Dates: start: 20130207
  2. SYNTHROID [Concomitant]

REACTIONS (7)
  - Fatigue [Unknown]
  - Flatulence [Unknown]
  - Rash [Unknown]
  - Visual acuity reduced [Unknown]
  - Muscular weakness [Unknown]
  - Hypoaesthesia [Unknown]
  - Frequent bowel movements [Unknown]
